FAERS Safety Report 6238853-7 (Version None)
Quarter: 2009Q2

REPORT INFORMATION
  Report Type: 
  Country: None (occurrence: None)
  Receive Date: 20090622
  Receipt Date: 20090618
  Transmission Date: 20091009
  Serious: Yes (Life-Threatening, Hospitalization)
  Sender: FDA-Public Use
  Company Number: HOAFF15038

PATIENT
  Sex: Male

DRUGS (3)
  1. NIZORAL [Suspect]
     Route: 048
  2. NIZORAL [Suspect]
     Route: 048
  3. NIZORAL [Suspect]
     Indication: TESTOTOXICOSIS
     Route: 048

REACTIONS (12)
  - CONFUSIONAL STATE [None]
  - CONJUNCTIVITIS [None]
  - CYANOSIS [None]
  - DIARRHOEA [None]
  - DISSEMINATED INTRAVASCULAR COAGULATION [None]
  - DRUG TOXICITY [None]
  - HEPATIC FAILURE [None]
  - LUNG INFILTRATION [None]
  - PNEUMONIA [None]
  - RASH ERYTHEMATOUS [None]
  - RENAL FAILURE ACUTE [None]
  - SHOCK [None]
